FAERS Safety Report 21805532 (Version 1)
Quarter: 2023Q1

REPORT INFORMATION
  Report Type: Spontaneous
  Country: CA (occurrence: CA)
  Receive Date: 20230102
  Receipt Date: 20230102
  Transmission Date: 20230417
  Serious: Yes (Other)
  Sender: FDA-Public Use
  Company Number: CA-SAMSUNG BIOEPIS-SB-2022-33047

PATIENT
  Age: 52 Year
  Sex: Male

DRUGS (2)
  1. INFLIXIMAB [Suspect]
     Active Substance: INFLIXIMAB
     Indication: Crohn^s disease
     Dosage: UNKNOWN
     Route: 065
  2. PURINETHOL [Concomitant]
     Active Substance: MERCAPTOPURINE
     Indication: Product used for unknown indication
     Route: 065

REACTIONS (3)
  - Ocular rosacea [Unknown]
  - Inappropriate schedule of product administration [Unknown]
  - Off label use [Unknown]
